FAERS Safety Report 9203890 (Version 1)
Quarter: 2013Q1

REPORT INFORMATION
  Report Type: Spontaneous
  Country: US (occurrence: None)
  Receive Date: 20130329
  Receipt Date: 20130329
  Transmission Date: 20140127
  Serious: No
  Sender: FDA-Public Use
  Company Number: None

PATIENT
  Age: 59 Year
  Sex: Male
  Weight: 72.9 kg

DRUGS (1)
  1. NITROGLYCERIN [Suspect]
     Route: 042
     Dates: start: 20130328, end: 20130328

REACTIONS (1)
  - Hypotension [None]
